FAERS Safety Report 9101738 (Version 2)
Quarter: 2013Q2

REPORT INFORMATION
  Report Type: Spontaneous
  Country: IT (occurrence: IT)
  Receive Date: 20130218
  Receipt Date: 20130409
  Transmission Date: 20140414
  Serious: Yes (Hospitalization)
  Sender: FDA-Public Use
  Company Number: IT-009507513-1302ITA006193

PATIENT
  Age: 50 Year
  Sex: Male

DRUGS (2)
  1. SYCREST [Suspect]
     Dosage: 5 MG, TOTAL
     Route: 048
     Dates: start: 20120825
  2. TAVOR [Suspect]
     Dosage: 2.5 MG, TOTAL
     Route: 048
     Dates: start: 20120825

REACTIONS (1)
  - Agitation [Recovering/Resolving]
